FAERS Safety Report 8300191-6 (Version None)
Quarter: 2012Q2

REPORT INFORMATION
  Report Type: 
  Country: None (occurrence: None)
  Receive Date: 20120417
  Receipt Date: 20120402
  Transmission Date: 20120825
  Serious: Yes (Other)
  Sender: FDA-Public Use
  Company Number: 2012-00591

PATIENT
  Age: 19 Year
  Sex: Female

DRUGS (4)
  1. CEFOTAXIME [Suspect]
     Indication: PRODUCT USED FOR UNKNOWN INDICATION
     Dosage: UNKNOWN (UNKNOWN, UNK), INTRAVENOUS
     Route: 042
     Dates: end: 20120322
  2. ANGELICA (TANGKUEI ROOT) (UNKNOWN) [Suspect]
     Indication: PRODUCT USED FOR UNKNOWN INDICATION
     Dosage: UNKNOWN (UNKNOWN, UNK), UNKNOWN
     Dates: end: 20120223
  3. IBUPROFEN [Concomitant]
  4. ACYCLOVIR [Concomitant]

REACTIONS (3)
  - ENCEPHALITIS [None]
  - ALANINE AMINOTRANSFERASE INCREASED [None]
  - ASPARTATE AMINOTRANSFERASE INCREASED [None]
